FAERS Safety Report 10039828 (Version 1)
Quarter: 2014Q1

REPORT INFORMATION
  Report Type: Spontaneous
  Country: ES (occurrence: ES)
  Receive Date: 20140326
  Receipt Date: 20140326
  Transmission Date: 20141002
  Serious: Yes (Other)
  Sender: FDA-Public Use
  Company Number: ES-JNJFOC-20140312578

PATIENT
  Age: 92 Year
  Sex: Male

DRUGS (1)
  1. DUROGESIC MATRIX [Suspect]
     Indication: PRODUCT USED FOR UNKNOWN INDICATION
     Route: 062
     Dates: start: 20140207, end: 20140210

REACTIONS (5)
  - Confusional state [Recovered/Resolved]
  - Incorrect dose administered [Recovered/Resolved]
  - Vomiting [Recovered/Resolved]
  - Toxicity to various agents [Unknown]
  - Drug dispensing error [Unknown]
